FAERS Safety Report 13125328 (Version 7)
Quarter: 2017Q3

REPORT INFORMATION
  Report Type: Spontaneous
  Country: KR (occurrence: KR)
  Receive Date: 20170118
  Receipt Date: 20170824
  Transmission Date: 20171127
  Serious: Yes (Other)
  Sender: FDA-Public Use
  Company Number: KR-009507513-1701KOR006907

PATIENT
  Age: 78 Year
  Sex: Male
  Weight: 60.8 kg

DRUGS (11)
  1. LEGALON [Concomitant]
     Active Substance: MILK THISTLE
     Indication: PROPHYLAXIS
     Dosage: 140 MG (1 CAPSULE), QD
     Route: 048
     Dates: start: 20160830, end: 20160913
  2. EMEND (FOSAPREPITANT DIMEGLUMINE) [Suspect]
     Active Substance: FOSAPREPITANT DIMEGLUMINE
     Indication: PROPHYLAXIS OF NAUSEA AND VOMITING
     Dosage: 150 MG, ONCE
     Route: 042
     Dates: start: 20160830, end: 20160830
  3. ALOXI [Concomitant]
     Active Substance: PALONOSETRON HYDROCHLORIDE
     Indication: PROPHYLAXIS OF NAUSEA AND VOMITING
     Dosage: 0.25 MG, ONCE
     Route: 042
     Dates: start: 20160830, end: 20160830
  4. TS-1 [Concomitant]
     Active Substance: GIMERACIL\OTERACIL\TEGAFUR
     Indication: GASTRIC CANCER
     Dosage: CYCLE 1, 2 CAPSULES, QD
     Route: 048
     Dates: start: 20160830, end: 20160912
  5. LASIX [Concomitant]
     Active Substance: FUROSEMIDE
     Indication: DRUG TOXICITY PROPHYLAXIS
     Dosage: 20 MG, ONCE
     Route: 042
     Dates: start: 20160830, end: 20160830
  6. LASIX [Concomitant]
     Active Substance: FUROSEMIDE
     Indication: OEDEMA PERIPHERAL
  7. CISPLAN [Concomitant]
     Active Substance: CISPLATIN
     Indication: GASTRIC CANCER
     Dosage: CYCLE 1, 80 MG, ONCE
     Route: 042
     Dates: start: 20160830, end: 20160830
  8. MADIPINE [Concomitant]
     Indication: HYPERTENSION
     Dosage: 10 MG (1 TABLET), QD
     Route: 048
     Dates: start: 20160830, end: 20160913
  9. DEXAMETHASONE SODIUM PHOSPHATE. [Concomitant]
     Active Substance: DEXAMETHASONE SODIUM PHOSPHATE
     Indication: PROPHYLAXIS OF NAUSEA AND VOMITING
     Dosage: 10 MG, ONCE
     Route: 042
     Dates: start: 20160830, end: 20160830
  10. LASIX [Concomitant]
     Active Substance: FUROSEMIDE
     Indication: PLEURAL EFFUSION
     Dosage: 20 MG, ONCE
     Route: 042
     Dates: start: 20160901, end: 20160901
  11. DICHLOZID [Concomitant]
     Indication: HYPERTENSION
     Dosage: HALF TABLET, QD
     Route: 048
     Dates: start: 20160830, end: 20160913

REACTIONS (6)
  - Anaemia [Recovered/Resolved]
  - Pain in extremity [Recovered/Resolved]
  - Pyrexia [Recovered/Resolved]
  - Oedema peripheral [Recovered/Resolved]
  - Headache [Recovered/Resolved]
  - Medical device site discharge [Recovered/Resolved]

NARRATIVE: CASE EVENT DATE: 20160831
